FAERS Safety Report 10926326 (Version 2)
Quarter: 2015Q1

REPORT INFORMATION
  Report Type: Spontaneous
  Country: US (occurrence: US)
  Receive Date: 20150318
  Receipt Date: 20150323
  Transmission Date: 20150721
  Serious: No
  Sender: FDA-Public Use
  Company Number: US-PFIZER INC-2015083561

PATIENT
  Sex: Female

DRUGS (3)
  1. VERSED [Suspect]
     Active Substance: MIDAZOLAM HYDROCHLORIDE
  2. MORPHINE SULFATE. [Suspect]
     Active Substance: MORPHINE SULFATE
  3. CODEINE [Suspect]
     Active Substance: CODEINE

REACTIONS (1)
  - Drug hypersensitivity [Unknown]
